FAERS Safety Report 6327979-5 (Version None)
Quarter: 2009Q3

REPORT INFORMATION
  Report Type: 
  Country: None (occurrence: None)
  Receive Date: 20090825
  Receipt Date: 20081201
  Transmission Date: 20100115
  Serious: No
  Sender: FDA-Public Use
  Company Number: US-ABBOTT-08P-163-0490571-00

PATIENT
  Sex: Female
  Weight: 104.42 kg

DRUGS (4)
  1. SYNTHROID [Suspect]
     Indication: HYPOTHYROIDISM
     Route: 048
     Dates: start: 19950101
  2. SYNTHROID [Suspect]
     Route: 048
     Dates: start: 20030101
  3. SYNTHROID [Suspect]
     Route: 048
     Dates: start: 20080601
  4. SYNTHROID [Suspect]
     Route: 048

REACTIONS (6)
  - FEELING ABNORMAL [None]
  - HYPERSENSITIVITY [None]
  - PALPITATIONS [None]
  - SKIN ULCER [None]
  - TINNITUS [None]
  - VERTIGO [None]
